FAERS Safety Report 17900526 (Version 1)
Quarter: 2020Q2

REPORT INFORMATION
  Report Type: Other
  Country: MX (occurrence: MX)
  Receive Date: 20200616
  Receipt Date: 20200616
  Transmission Date: 20200714
  Serious: Yes (Hospitalization)
  Sender: FDA-Public Use
  Company Number: MX-AJANTA PHARMA USA INC.-2085950

PATIENT
  Age: 12 Year
  Sex: Male

DRUGS (3)
  1. RANITIDINE (ANDA 209859) [Suspect]
     Active Substance: RANITIDINE
  2. ACETAMINOPHEN. [Concomitant]
     Active Substance: ACETAMINOPHEN
  3. METAMIZOLE [Concomitant]
     Active Substance: METAMIZOLE

REACTIONS (2)
  - Nodal rhythm [Recovered/Resolved]
  - Bradycardia [Recovered/Resolved]
